FAERS Safety Report 12617979 (Version 1)
Quarter: 2016Q3

REPORT INFORMATION
  Report Type: Spontaneous
  Country: US (occurrence: None)
  Receive Date: 20160802
  Receipt Date: 20160802
  Transmission Date: 20161109
  Serious: Yes (Disabling)
  Sender: FDA-Public Use
  Company Number: None

PATIENT
  Age: 58 Year
  Sex: Male
  Weight: 92.99 kg

DRUGS (7)
  1. SERTRALINE HCL [Suspect]
     Active Substance: SERTRALINE HYDROCHLORIDE
     Indication: BIPOLAR DISORDER
     Dosage: 150MG THRU FEB 100MG THRU APR 50MG THRU JULY 25MG 1 1/2 1 1/2 1/4 ONCE AT BEDTIME BY MOUTH
     Route: 048
     Dates: start: 20151015, end: 201602
  2. HYDROCHLOROTHIAZ OP [Concomitant]
  3. SERTRALINE [Concomitant]
     Active Substance: SERTRALINE HYDROCHLORIDE
  4. SERTRALINE HCL [Suspect]
     Active Substance: SERTRALINE HYDROCHLORIDE
     Indication: DEPRESSION
     Dosage: 150MG THRU FEB 100MG THRU APR 50MG THRU JULY 25MG 1 1/2 1 1/2 1/4 ONCE AT BEDTIME BY MOUTH
     Route: 048
     Dates: start: 20151015, end: 201602
  5. EQUATE COM MULTIVITAMIN [Concomitant]
  6. LISINOPRIL. [Concomitant]
     Active Substance: LISINOPRIL
  7. ZOLPIDEM [Concomitant]
     Active Substance: ZOLPIDEM\ZOLPIDEM TARTRATE

REACTIONS (3)
  - Muscle rigidity [None]
  - Dysarthria [None]
  - Balance disorder [None]

NARRATIVE: CASE EVENT DATE: 20151030
